FAERS Safety Report 8609393-2 (Version None)
Quarter: 2012Q3

REPORT INFORMATION
  Report Type: 
  Country: None (occurrence: None)
  Receive Date: 20120821
  Receipt Date: 20120813
  Transmission Date: 20120928
  Serious: Yes (Hospitalization, Other)
  Sender: FDA-Public Use
  Company Number: US-CELGENEUS-163-21880-12060381

PATIENT
  Sex: Male
  Weight: 59.5 kg

DRUGS (2)
  1. REVLIMID [Suspect]
     Dosage: 15 MILLIGRAM
     Route: 048
  2. REVLIMID [Suspect]
     Indication: MULTIPLE MYELOMA
     Dosage: 25 MILLIGRAM
     Route: 048
     Dates: start: 20120401, end: 20120501

REACTIONS (6)
  - RENAL FAILURE ACUTE [None]
  - BACTERAEMIA [None]
  - HYPERCALCAEMIA [None]
  - ABDOMINAL DISCOMFORT [None]
  - CONSTIPATION [None]
  - STAPHYLOCOCCAL INFECTION [None]
